FAERS Safety Report 12400252 (Version 1)
Quarter: 2016Q2

REPORT INFORMATION
  Report Type: Spontaneous
  Country: US (occurrence: None)
  Receive Date: 20160524
  Receipt Date: 20160524
  Transmission Date: 20160815
  Serious: Yes (Hospitalization, Disabling)
  Sender: FDA-Public Use
  Company Number: None

PATIENT
  Age: 55 Year
  Sex: Female
  Weight: 108.41 kg

DRUGS (1)
  1. AMIODARONE CAME FROM THE PHARMAC [Suspect]
     Active Substance: AMIODARONE

REACTIONS (1)
  - Thyroid disorder [None]
